FAERS Safety Report 6775253-5 (Version None)
Quarter: 2010Q2

REPORT INFORMATION
  Report Type: 
  Country: None (occurrence: None)
  Receive Date: 20100615
  Receipt Date: 20100615
  Transmission Date: 20101027
  Serious: Yes (Other)
  Sender: FDA-Public Use
  Company Number: None

PATIENT
  Age: 1 Day
  Sex: Male
  Weight: 3 kg

DRUGS (1)
  1. ALPROSTADIL [Suspect]
     Indication: HEART DISEASE CONGENITAL
     Dosage: 0.2MCG/KG/MIN
     Dates: start: 20100403, end: 20100404

REACTIONS (4)
  - APNOEIC ATTACK [None]
  - FEELING JITTERY [None]
  - HYPERTHERMIA [None]
  - INCORRECT DOSE ADMINISTERED [None]
